FAERS Safety Report 21477216 (Version 1)
Quarter: 2022Q4

REPORT INFORMATION
  Report Type: Spontaneous
  Country: US (occurrence: US)
  Receive Date: 20221019
  Receipt Date: 20221019
  Transmission Date: 20230113
  Serious: No
  Sender: FDA-Public Use
  Company Number: US-ALLERGAN-2207211US

PATIENT
  Age: 75 Year
  Sex: Male

DRUGS (1)
  1. LINZESS [Suspect]
     Active Substance: LINACLOTIDE
     Indication: Constipation
     Dosage: 145 ?G
     Dates: start: 20220225

REACTIONS (7)
  - Pain [Unknown]
  - Product dose omission in error [Unknown]
  - Faeces hard [Unknown]
  - Rectal tenesmus [Unknown]
  - Diarrhoea [Unknown]
  - Drug ineffective [Unknown]
  - Product label confusion [Unknown]

NARRATIVE: CASE EVENT DATE: 20220227
